FAERS Safety Report 24200813 (Version 2)
Quarter: 2024Q4

REPORT INFORMATION
  Report Type: Spontaneous
  Country: US (occurrence: US)
  Receive Date: 20240812
  Receipt Date: 20241023
  Transmission Date: 20250115
  Serious: Yes (Other)
  Sender: BRISTOL-MYERS SQUIBB COMPANY
  Company Number: US-BRISTOL-MYERS SQUIBB COMPANY-2024-125351

PATIENT
  Age: 77 Year
  Sex: Female
  Weight: 63.96 kg

DRUGS (35)
  1. REVLIMID [Suspect]
     Active Substance: LENALIDOMIDE
     Indication: Plasma cell myeloma
     Dosage: CONTINUOUS 28 DAY
     Route: 048
  2. REVLIMID [Suspect]
     Active Substance: LENALIDOMIDE
     Dosage: CONTINUOUS 28 DAY
     Route: 048
     Dates: start: 20240808
  3. REVLIMID [Suspect]
     Active Substance: LENALIDOMIDE
     Dosage: TAKE ONE CAPSULE 5MG BY MOUTH ONCE DAILY FOR 28 DAYS
     Route: 048
     Dates: start: 20241003
  4. REVLIMID [Suspect]
     Active Substance: LENALIDOMIDE
     Dosage: TAKE ONE CAPSULE 10MG BY MOUTH ONCE DAILY FOR 28 DAYS OF EACH 28 DAYS CYCLE
     Route: 048
     Dates: start: 20240709
  5. REVLIMID [Suspect]
     Active Substance: LENALIDOMIDE
     Dosage: TAKE ONE CAPSULE 10MG BY MOUTH ONCE DAILY FOR 28 DAYS OF EACH 28 DAYS CYCLE
     Route: 048
     Dates: start: 20240514
  6. REVLIMID [Suspect]
     Active Substance: LENALIDOMIDE
     Dosage: TAKE ONE CAPSULE 10MG BY MOUTH ONCE DAILY FOR 28 DAYS OF EACH 28 DAYS CYCLE
     Route: 048
     Dates: start: 20240417
  7. REVLIMID [Suspect]
     Active Substance: LENALIDOMIDE
     Dosage: TAKE ONE CAPSULE 10MG BY MOUTH ONCE DAILY FOR 28 DAYS
     Route: 048
     Dates: start: 20240805
  8. REVLIMID [Suspect]
     Active Substance: LENALIDOMIDE
     Dosage: TAKE ONE CAPSULE 10MG BY MOUTH ONCE DAILY FOR 28 DAYS
     Route: 048
     Dates: start: 20240709
  9. REVLIMID [Suspect]
     Active Substance: LENALIDOMIDE
     Dosage: TAKE ONE CAPSULE 10MG BY MOUTH ONCE DAILY FOR 28 DAYS OF EACH 28 DAYS CYCLE
     Route: 048
     Dates: start: 20240610
  10. REVLIMID [Suspect]
     Active Substance: LENALIDOMIDE
     Dosage: TAKE ONE CAPSULE 10MG BY MOUTH ONCE DAILY FOR 28 DAYS OF EACH 28 DAYS CYCLE
     Route: 048
     Dates: start: 20240515
  11. REVLIMID [Suspect]
     Active Substance: LENALIDOMIDE
     Dosage: TAKE ONE CAPSULE 10MG BY MOUTH ONCE DAILY FOR 28 DAYS
     Route: 048
     Dates: start: 20240419
  12. REVLIMID [Suspect]
     Active Substance: LENALIDOMIDE
     Dosage: TAKE ONE CAPSULE 10MG BY MOUTH ONCE DAILY FOR 28 DAYS OF EACH 28 DAYS CYCLE
     Route: 048
     Dates: start: 20240318
  13. REVLIMID [Suspect]
     Active Substance: LENALIDOMIDE
     Dosage: TAKE ONE CAPSULE 10MG BY MOUTH ONCE DAILY FOR 28 DAYS OF EACH 28 DAYS CYCLE
     Route: 048
     Dates: start: 20240912
  14. REVLIMID [Suspect]
     Active Substance: LENALIDOMIDE
     Dosage: TAKE ONE CAPSULE 5MG BY MOUTH ONCE DAILY FOR 28 DAYS
     Route: 048
     Dates: start: 20241007
  15. CARVEDILOL [Concomitant]
     Active Substance: CARVEDILOL
     Indication: Product used for unknown indication
     Dosage: AURO
     Route: 048
     Dates: start: 20240612
  16. ACYCLOVIR [Concomitant]
     Active Substance: ACYCLOVIR
     Indication: Product used for unknown indication
     Dates: start: 20240326
  17. POTASSIUM CHLORIDE [Concomitant]
     Active Substance: POTASSIUM CHLORIDE
     Indication: Product used for unknown indication
     Dosage: ER; TBCR
     Dates: start: 20240326
  18. FOLIC ACID [Concomitant]
     Active Substance: FOLIC ACID
     Indication: Product used for unknown indication
     Dates: start: 20240326
  19. HYDROCHLOROTHIAZIDE [Concomitant]
     Active Substance: HYDROCHLOROTHIAZIDE
     Indication: Product used for unknown indication
     Dates: start: 20230905
  20. HYDROCHLOROTHIAZIDE [Concomitant]
     Active Substance: HYDROCHLOROTHIAZIDE
     Dates: start: 20230530
  21. ELIQUIS [Concomitant]
     Active Substance: APIXABAN
     Indication: Product used for unknown indication
     Route: 048
     Dates: start: 20230905
  22. ROSUVASTATIN CALCIUM [Concomitant]
     Active Substance: ROSUVASTATIN CALCIUM
     Indication: Product used for unknown indication
     Dates: start: 20230905
  23. ASPIRIN [Concomitant]
     Active Substance: ASPIRIN
     Indication: Product used for unknown indication
     Dosage: TBEC
     Dates: start: 20230605
  24. FISH OIL [Concomitant]
     Active Substance: FISH OIL
     Indication: Product used for unknown indication
     Dates: start: 20230605
  25. VITAMIN B COMPLEX NOS [Concomitant]
     Active Substance: CYANOCOBALAMIN\PYRIDOXINE HYDROCHLORIDE\RIBOFLAVIN\SODIUM PANTOTHENATE\THIAMINE HYDROCHLORIDE\VITAMI
     Indication: Product used for unknown indication
     Dates: start: 20230605
  26. MELOXICAM [Concomitant]
     Active Substance: MELOXICAM
     Indication: Product used for unknown indication
     Dates: start: 20230530
  27. HYDRALAZINE HCL [Concomitant]
     Active Substance: HYDRALAZINE HYDROCHLORIDE
     Indication: Product used for unknown indication
     Dates: start: 20230530
  28. DEXAMETHASONE [Concomitant]
     Active Substance: DEXAMETHASONE
     Indication: Product used for unknown indication
     Dosage: BTL
     Route: 048
     Dates: start: 20230530
  29. FAMOTIDINE [Concomitant]
     Active Substance: FAMOTIDINE
     Indication: Product used for unknown indication
     Dates: start: 20230530
  30. LEVOTHYROXINE SODIUM [Concomitant]
     Active Substance: LEVOTHYROXINE SODIUM
     Indication: Product used for unknown indication
     Dates: start: 20230530
  31. IRBESARTAN [Concomitant]
     Active Substance: IRBESARTAN
     Indication: Product used for unknown indication
     Dates: start: 20230530
  32. METFORMIN HYDROCHLORIDE [Concomitant]
     Active Substance: METFORMIN HYDROCHLORIDE
     Indication: Product used for unknown indication
     Dosage: ER; TB24
     Dates: start: 20230530
  33. ESCITALOPRAM OXALATE [Concomitant]
     Active Substance: ESCITALOPRAM OXALATE
     Indication: Product used for unknown indication
     Dates: start: 20230530
  34. LENALIDOMIDE DR. REDDY^S [Concomitant]
     Indication: Product used for unknown indication
     Dosage: TAKE 1 CAPSULE 10 MG BY MOUTH ONCE DAILY
     Route: 048
     Dates: start: 20240202
  35. LENALIDOMIDE DR. REDDY^S [Concomitant]
     Dosage: TAKE 1 CAPSULE 10 MG BY MOUTH ONCE DAILY
     Route: 048
     Dates: start: 20240308

REACTIONS (1)
  - Pneumonia [Not Recovered/Not Resolved]
